FAERS Safety Report 24875190 (Version 1)
Quarter: 2025Q1

REPORT INFORMATION
  Report Type: Spontaneous
  Country: US (occurrence: None)
  Receive Date: 20250122
  Receipt Date: 20250122
  Transmission Date: 20250409
  Serious: Yes (Death)
  Sender: FDA-CTU
  Company Number: None

PATIENT
  Age: 43 Year
  Sex: Male
  Weight: 88.3 kg

DRUGS (4)
  1. CEFTRIAXONE SODIUM [Suspect]
     Active Substance: CEFTRIAXONE SODIUM
     Indication: Urinary tract infection
     Route: 042
     Dates: start: 20250120, end: 20250120
  2. STERILE WATER FOR INJECTION [Suspect]
     Active Substance: WATER
     Route: 042
     Dates: start: 20250120, end: 20250120
  3. CIPROFLOXACIN [Concomitant]
     Active Substance: CIPROFLOXACIN
  4. Doxycycline 100 mg cap [Concomitant]

REACTIONS (5)
  - Cardiac arrest [None]
  - Erythema [None]
  - Flushing [None]
  - Infusion related reaction [None]
  - Dyspnoea [None]

NARRATIVE: CASE EVENT DATE: 20250121
